FAERS Safety Report 11322172 (Version 1)
Quarter: 2015Q3

REPORT INFORMATION
  Report Type: Report from Study
  Country: US (occurrence: US)
  Receive Date: 20150729
  Receipt Date: 20150729
  Transmission Date: 20151125
  Serious: Yes (Hospitalization)
  Sender: FDA-Public Use
  Company Number: US-TEVA-581881USA

PATIENT
  Age: 46 Year
  Sex: Female

DRUGS (13)
  1. PACLITAXEL. [Suspect]
     Active Substance: PACLITAXEL
     Indication: TRIPLE NEGATIVE BREAST CANCER
     Dosage: DAY 1 OF 12 WEEKLY CYCLES DURING CHEMOTHERAPY SEGMENT 1 (
     Route: 042
     Dates: start: 20150313, end: 20150322
  2. FAMOTIDINE. [Concomitant]
     Active Substance: FAMOTIDINE
     Indication: PREMEDICATION
     Dosage: 2.8571 MILLIGRAM DAILY;
     Route: 042
     Dates: start: 20150313
  3. DOXORUBICIN [Suspect]
     Active Substance: DOXORUBICIN
     Indication: TRIPLE NEGATIVE BREAST CANCER
     Dosage: DAY 1 OF 21-DAY CYCLE DURING CHEMOTHERAPY SEGMENT 2 (60 MG/M2)
     Route: 042
     Dates: start: 20150619, end: 20150619
  4. CARBOPLATIN. [Suspect]
     Active Substance: CARBOPLATIN
     Dosage: AUC 6; DAY 1 OF 21-DAY CYCLE DUR NG CHEMOTHERAPY SEGMENT 1
     Route: 042
     Dates: start: 20150508, end: 20150508
  5. ONDANSETRON [Concomitant]
     Active Substance: ONDANSETRON
     Indication: NAUSEA
     Route: 054
     Dates: start: 20150317
  6. DEXAMETHASONE. [Concomitant]
     Active Substance: DEXAMETHASONE
     Indication: PREMEDICATION
     Dosage: 2.5714 MILLIGRAM DAILY;
     Route: 048
     Dates: start: 20150313
  7. CYCLOPHOSPHAMIDE. [Suspect]
     Active Substance: CYCLOPHOSPHAMIDE
     Indication: TRIPLE NEGATIVE BREAST CANCER
     Dosage: DAY 1 OF 21-DAY CYCLE DURING CHEMOTHERAPY SEGMENT 2
     Route: 042
     Dates: start: 20150619, end: 20150619
  8. CARBOPLATIN. [Suspect]
     Active Substance: CARBOPLATIN
     Dosage: AUC 6; DAY 1 OF 21-DAY CYCLE DUR NG CHEMOTHERAPY SEGMENT 1
     Route: 042
     Dates: start: 20150417, end: 20150417
  9. PALONOSETRON [Concomitant]
     Active Substance: PALONOSETRON
     Indication: PREMEDICATION
     Dosage: 11.9048 MICROGRAM DAILY;
     Route: 042
     Dates: start: 20150313
  10. EXCEDRIN [Concomitant]
     Active Substance: ACETAMINOPHEN\ASPIRIN\CAFFEINE
     Indication: MIGRAINE
     Route: 048
  11. DIPHENHYDRAMINE. [Concomitant]
     Active Substance: DIPHENHYDRAMINE
     Indication: PREMEDICATION
     Dosage: 7.1429 MILLIGRAM DAILY;
     Route: 042
     Dates: start: 20150313
  12. ABT-888-VELIPARIB [Suspect]
     Active Substance: VELIPARIB
     Dosage: DAILY THROUGH CHEMOTHERAPY SEGMENT 1 (2 IN 1 D)
     Route: 048
     Dates: start: 20150313, end: 20150521
  13. CARBOPLATIN. [Suspect]
     Active Substance: CARBOPLATIN
     Dosage: AUC 6; DAY 1 OF 21-DAY CYCLE DUR NG CHEMOTHERAPY SEGMENT 1
     Route: 042
     Dates: start: 20150313, end: 20150313

REACTIONS (1)
  - Haematemesis [Recovering/Resolving]
